FAERS Safety Report 14045868 (Version 2)
Quarter: 2017Q4

REPORT INFORMATION
  Report Type: Spontaneous
  Country: BR (occurrence: BR)
  Receive Date: 20171005
  Receipt Date: 20171202
  Transmission Date: 20180321
  Serious: Yes (Hospitalization)
  Sender: FDA-Public Use
  Company Number: BR-AMGEN-BRASP2017149751

PATIENT
  Age: 72 Year
  Sex: Female

DRUGS (1)
  1. ENBREL [Suspect]
     Active Substance: ETANERCEPT
     Indication: PRODUCT USED FOR UNKNOWN INDICATION
     Dosage: UNK
     Route: 065
     Dates: start: 2014, end: 2016

REACTIONS (5)
  - Exostosis [Not Recovered/Not Resolved]
  - Fall [Unknown]
  - Swelling [Unknown]
  - Infection [Not Recovered/Not Resolved]
  - Arthritis [Unknown]
